FAERS Safety Report 8180675-4 (Version None)
Quarter: 2012Q1

REPORT INFORMATION
  Report Type: 
  Country: None (occurrence: None)
  Receive Date: 20120302
  Receipt Date: 20120222
  Transmission Date: 20120608
  Serious: Yes (Hospitalization)
  Sender: FDA-Public Use
  Company Number: IT-ROCHE-1036416

PATIENT
  Sex: Male

DRUGS (4)
  1. PREDNISONE TAB [Concomitant]
     Dosage: 25 MG TAB
     Route: 048
  2. ALLOPURINOL [Concomitant]
     Dosage: 30 MG TAB
     Route: 048
  3. BENDAMUSTINE HYDROCHLORIDE [Concomitant]
     Route: 042
     Dates: start: 20110524, end: 20110720
  4. MABTHERA [Suspect]
     Indication: CHRONIC LYMPHOCYTIC LEUKAEMIA
     Route: 042
     Dates: start: 20110523, end: 20111027

REACTIONS (3)
  - RENAL FAILURE [None]
  - LYMPHOPENIA [None]
  - HAEMATURIA [None]
